FAERS Safety Report 11372709 (Version 2)
Quarter: 2015Q3

REPORT INFORMATION
  Report Type: Spontaneous
  Country: US (occurrence: US)
  Receive Date: 20150811
  Receipt Date: 20150811
  Transmission Date: 20151125
  Serious: No
  Sender: FDA-Public Use
  Company Number: US-ELI_LILLY_AND_COMPANY-US201208007118

PATIENT
  Sex: Male

DRUGS (4)
  1. AXIRON [Suspect]
     Active Substance: TESTOSTERONE
     Dosage: 120 MG, QD
  2. AXIRON [Suspect]
     Active Substance: TESTOSTERONE
     Dosage: 60 MG, QD
  3. CIALIS [Suspect]
     Active Substance: TADALAFIL
     Dosage: 5 MG, UNKNOWN
  4. AXIRON [Suspect]
     Active Substance: TESTOSTERONE
     Dosage: 60 MG, QD

REACTIONS (4)
  - Injury [Unknown]
  - Fall [Unknown]
  - Blood testosterone decreased [Recovered/Resolved]
  - Blood testosterone increased [Recovered/Resolved]
